FAERS Safety Report 13426698 (Version 1)
Quarter: 2017Q2

REPORT INFORMATION
  Report Type: Spontaneous
  Country: US (occurrence: US)
  Receive Date: 20170411
  Receipt Date: 20170411
  Transmission Date: 20170830
  Serious: No
  Sender: FDA-Public Use
  Company Number: None

PATIENT

DRUGS (1)
  1. LEVAQUIN [Suspect]
     Active Substance: LEVOFLOXACIN
     Dosage: 5 MORE DAYS 500 MG

REACTIONS (9)
  - Arthritis [None]
  - Pruritus [None]
  - Hypoaesthesia [None]
  - Gait disturbance [None]
  - Pain in extremity [None]
  - Rash generalised [None]
  - Arthralgia [None]
  - Urine odour abnormal [None]
  - Joint swelling [None]

NARRATIVE: CASE EVENT DATE: 20170404
